FAERS Safety Report 13784558 (Version 1)
Quarter: 2017Q3

REPORT INFORMATION
  Report Type: Spontaneous
  Country: US (occurrence: US)
  Receive Date: 20170724
  Receipt Date: 20170724
  Transmission Date: 20171127
  Serious: No
  Sender: FDA-Public Use
  Company Number: US-IMPAX LABORATORIES, INC-2017-IPXL-01347

PATIENT
  Age: 81 Year
  Sex: Male
  Weight: 61 kg

DRUGS (3)
  1. RYTARY [Suspect]
     Active Substance: CARBIDOPA\LEVODOPA
     Dosage: 48.75/195MG, 3 DF, 4 /DAY
     Route: 048
  2. TYLENOL MAXIMUM STRENGTH SINUS [Concomitant]
     Indication: PAIN
     Dosage: UNK, PRN
     Route: 065
  3. RYTARY [Suspect]
     Active Substance: CARBIDOPA\LEVODOPA
     Indication: PARKINSON^S DISEASE
     Dosage: UNK
     Route: 048
     Dates: start: 2015

REACTIONS (1)
  - Dental caries [Unknown]
